FAERS Safety Report 23796094 (Version 1)
Quarter: 2024Q2

REPORT INFORMATION
  Report Type: Spontaneous
  Country: CN (occurrence: CN)
  Receive Date: 20240429
  Receipt Date: 20240429
  Transmission Date: 20240716
  Serious: Yes (Hospitalization)
  Sender: FDA-Public Use
  Company Number: CN-Merck Healthcare KGaA-2024021355

PATIENT
  Age: 36 Year
  Sex: Male
  Weight: 54 kg

DRUGS (3)
  1. ERBITUX [Suspect]
     Active Substance: CETUXIMAB
     Indication: Keratinising squamous cell carcinoma of nasopharynx
     Dosage: 0.4 G, DAILY
     Route: 041
     Dates: start: 20240330, end: 20240330
  2. CARBOPLATIN [Suspect]
     Active Substance: CARBOPLATIN
     Indication: Keratinising squamous cell carcinoma of nasopharynx
     Dosage: 0.2 G, DAILY
     Route: 041
     Dates: start: 20240330, end: 20240330
  3. PACLITAXEL [Suspect]
     Active Substance: PACLITAXEL
     Indication: Keratinising squamous cell carcinoma of nasopharynx
     Dosage: 0.1 G, DAILY
     Route: 041
     Dates: start: 20240330, end: 20240330

REACTIONS (1)
  - Myelosuppression [Recovering/Resolving]

NARRATIVE: CASE EVENT DATE: 20240411
